FAERS Safety Report 7053237-X (Version None)
Quarter: 2010Q4

REPORT INFORMATION
  Report Type: 
  Country: None (occurrence: None)
  Receive Date: 20101013
  Receipt Date: 20101008
  Transmission Date: 20110411
  Serious: Yes (Hospitalization)
  Sender: FDA-Public Use
  Company Number: WAES 1007USA04071

PATIENT
  Age: 61 Year
  Sex: Male

DRUGS (11)
  1. TAB RALTEGRAVIR POTASSIUM [Suspect]
     Indication: HIV INFECTION
     Dosage: 400 MG/BID PO
     Route: 048
     Dates: start: 20100515
  2. ABACAVIR SULFATE [Suspect]
     Indication: HIV INFECTION
     Dosage: 600 MG/DAILY PO
     Route: 048
     Dates: start: 20010417
  3. ATAZANAVIR [Suspect]
     Indication: HIV INFECTION
     Dosage: 300 MG/DAILY PO
     Route: 048
     Dates: start: 20050405
  4. RITONAVIR [Suspect]
     Indication: HIV INFECTION
     Dosage: 100 MG/DAILY PO
     Route: 048
     Dates: start: 20050405
  5. ASPIRIN [Concomitant]
  6. GOPTEN [Concomitant]
  7. PRAVACHOL [Concomitant]
  8. VALTREX [Concomitant]
  9. BETANIE [Concomitant]
  10. CLOPIDOGREL BISULFATE [Concomitant]
  11. EZETROL [Concomitant]

REACTIONS (4)
  - GROIN PAIN [None]
  - NEPHROLITHIASIS [None]
  - RENAL COLIC [None]
  - RENAL FAILURE ACUTE [None]
